FAERS Safety Report 5156270-8 (Version None)
Quarter: 2006Q4

REPORT INFORMATION
  Report Type: 
  Country: None (occurrence: None)
  Receive Date: 20061122
  Receipt Date: 20061107
  Transmission Date: 20070319
  Serious: Yes (Other)
  Sender: FDA-Public Use
  Company Number: US-ELI_LILLY_AND_COMPANY-US200611001952

PATIENT
  Age: 76 Year
  Sex: Female
  Weight: 75.283 kg

DRUGS (2)
  1. GEMCITABINE HCL [Suspect]
     Indication: NON-SMALL CELL LUNG CANCER
  2. VINORELBINE [Concomitant]

REACTIONS (1)
  - NEUROPATHY [None]
